FAERS Safety Report 5509975-0 (Version None)
Quarter: 2007Q4

REPORT INFORMATION
  Report Type: 
  Country: None (occurrence: None)
  Receive Date: 20071108
  Receipt Date: 20061115
  Transmission Date: 20080405
  Serious: No
  Sender: FDA-Public Use
  Company Number: US-ABBOTT-06P-163-0350866-00

PATIENT
  Sex: Male
  Weight: 79.45 kg

DRUGS (1)
  1. BIAXIN [Suspect]
     Indication: PHARYNGITIS STREPTOCOCCAL
     Route: 048
     Dates: start: 20061111, end: 20061113

REACTIONS (1)
  - HICCUPS [None]
